FAERS Safety Report 21028063 (Version 1)
Quarter: 2022Q3

REPORT INFORMATION
  Report Type: Spontaneous
  Country: CN (occurrence: CN)
  Receive Date: 20220630
  Receipt Date: 20220630
  Transmission Date: 20221027
  Serious: Yes (Hospitalization)
  Sender: FDA-Public Use
  Company Number: CN-NOVARTISPH-NVSC2022CN148361

PATIENT
  Age: 41 Year
  Sex: Female
  Weight: 57.5 kg

DRUGS (4)
  1. AMOXICILLIN\CLAVULANATE POTASSIUM [Suspect]
     Active Substance: AMOXICILLIN\CLAVULANATE POTASSIUM
     Indication: Peritoneal dialysis
     Dosage: 1 G, BID
     Route: 048
     Dates: start: 20220608, end: 20220608
  2. AMOXICILLIN\CLAVULANATE POTASSIUM [Suspect]
     Active Substance: AMOXICILLIN\CLAVULANATE POTASSIUM
     Dosage: 1 DOSAGE FORM, QD
     Route: 048
     Dates: start: 20220609, end: 20220611
  3. MEROPENEM [Suspect]
     Active Substance: MEROPENEM
     Indication: Peritoneal dialysis
     Dosage: 0.5 MG (ROUTE: EXTERNAL USE), BID
     Route: 065
     Dates: start: 20220602, end: 20220605
  4. MEROPENEM [Suspect]
     Active Substance: MEROPENEM
     Dosage: 0.5 MG (ROUTE: EXTERNAL USE), BID
     Route: 065
     Dates: start: 20220606, end: 20220608

REACTIONS (1)
  - Pyrexia [Recovered/Resolved]

NARRATIVE: CASE EVENT DATE: 20220608
